FAERS Safety Report 7278934-2 (Version None)
Quarter: 2011Q1

REPORT INFORMATION
  Report Type: 
  Country: None (occurrence: None)
  Receive Date: 20110207
  Receipt Date: 20110125
  Transmission Date: 20110831
  Serious: Yes (Other)
  Sender: FDA-Public Use
  Company Number: PHRM2007FR02399

PATIENT
  Sex: Female

DRUGS (1)
  1. ZOMETA [Suspect]
     Indication: COMPLEX REGIONAL PAIN SYNDROME
     Dates: start: 20060501, end: 20061101

REACTIONS (7)
  - DEVICE FAILURE [None]
  - DRUG INEFFECTIVE [None]
  - INFECTION [None]
  - OSTEONECROSIS OF JAW [None]
  - GINGIVAL PAIN [None]
  - PURULENT DISCHARGE [None]
  - BONE DENSITY DECREASED [None]
